FAERS Safety Report 4751155-0 (Version None)
Quarter: 2005Q3

REPORT INFORMATION
  Report Type: 
  Country: None (occurrence: None)
  Receive Date: 20050824
  Receipt Date: 20050817
  Transmission Date: 20060218
  Serious: Yes (Hospitalization)
  Sender: FDA-Public Use
  Company Number: IT-BRACCO-BCM-000927

PATIENT
  Sex: Female

DRUGS (10)
  1. IOPAMIRO [Suspect]
     Indication: EXOPHTHALMOS
     Route: 013
     Dates: start: 20050812, end: 20050812
  2. IOPAMIRO [Suspect]
     Indication: FISTULA
     Route: 013
     Dates: start: 20050812, end: 20050812
  3. IOPAMIRO [Suspect]
     Route: 013
     Dates: start: 20050812, end: 20050812
  4. GARDENALE [Concomitant]
     Route: 050
  5. LOSARTAN POTASSIUM W/HYDROCHLOROTHIAZIDE [Concomitant]
     Route: 048
  6. SEQUACOR [Concomitant]
     Route: 048
  7. CARDIOASPIRIN [Concomitant]
     Route: 048
  8. ANTRA                              /00661201/ [Concomitant]
     Route: 048
  9. TORADOL [Concomitant]
     Route: 048
  10. LEXOTAN [Concomitant]
     Route: 048

REACTIONS (5)
  - AGITATION [None]
  - BLINDNESS CORTICAL [None]
  - CONFUSIONAL STATE [None]
  - HEMIPARESIS [None]
  - PSYCHOMOTOR RETARDATION [None]
